FAERS Safety Report 4506443-X (Version None)
Quarter: 2004Q4

REPORT INFORMATION
  Report Type: 
  Country: None (occurrence: None)
  Receive Date: 20041117
  Receipt Date: 20041101
  Transmission Date: 20050328
  Serious: Yes (Other)
  Sender: FDA-Public Use
  Company Number: 702233

PATIENT
  Age: 61 Year
  Sex: Male
  Weight: 92.5338 kg

DRUGS (20)
  1. AMEVIVE [Suspect]
     Indication: PSORIASIS
     Dosage: 15 MG QW IM
     Route: 030
     Dates: start: 20031201
  2. MULTI-VITAMINS [Concomitant]
  3. ALDACTONE [Concomitant]
  4. LASIX [Concomitant]
  5. ZESTRIL [Concomitant]
  6. INDERAL [Concomitant]
  7. PREVACID [Concomitant]
  8. THEO-24 [Concomitant]
  9. FLOVENT [Concomitant]
  10. COMBIVENT [Concomitant]
  11. NASACORT [Concomitant]
  12. INDOCIN [Concomitant]
  13. ALLOPURINOL [Concomitant]
  14. COZAAR [Concomitant]
  15. DOVONEX [Concomitant]
  16. ULTRAVATE [Concomitant]
  17. NASONEX [Concomitant]
  18. POTASSIUM [Concomitant]
  19. VITAMIN K [Concomitant]
  20. QUININE [Concomitant]

REACTIONS (15)
  - ACUTE PRERENAL FAILURE [None]
  - ANAEMIA [None]
  - ASPARTATE AMINOTRANSFERASE INCREASED [None]
  - BLOOD BICARBONATE DECREASED [None]
  - BLOOD CHLORIDE INCREASED [None]
  - BLOOD GLUCOSE DECREASED [None]
  - BLOOD PRESSURE DECREASED [None]
  - CONDITION AGGRAVATED [None]
  - DIASTOLIC DYSFUNCTION [None]
  - HYPERKALAEMIA [None]
  - PCO2 DECREASED [None]
  - PLATELET COUNT DECREASED [None]
  - RED BLOOD CELL SEDIMENTATION RATE INCREASED [None]
  - RENAL FAILURE [None]
  - VENTRICULAR HYPERTROPHY [None]
